FAERS Safety Report 8588072-4 (Version None)
Quarter: 2012Q3

REPORT INFORMATION
  Report Type: 
  Country: None (occurrence: None)
  Receive Date: 20120813
  Receipt Date: 20120808
  Transmission Date: 20120928
  Serious: No
  Sender: FDA-Public Use
  Company Number: US-PFIZER INC-2012193753

PATIENT
  Age: 39 Year
  Sex: Female
  Weight: 65.76 kg

DRUGS (1)
  1. ADVIL [Suspect]
     Indication: EPICONDYLITIS
     Dosage: 200 MG, 2X/DAY
     Route: 048
     Dates: start: 20120729, end: 20120730

REACTIONS (4)
  - CONSTIPATION [None]
  - ABDOMINAL PAIN UPPER [None]
  - DIZZINESS [None]
  - DISORIENTATION [None]
